FAERS Safety Report 7361877-3 (Version None)
Quarter: 2011Q1

REPORT INFORMATION
  Report Type: 
  Country: None (occurrence: None)
  Receive Date: 20110315
  Receipt Date: 20110315
  Transmission Date: 20110831
  Serious: No
  Sender: FDA-Public Use
  Company Number: None

PATIENT
  Sex: Female
  Weight: 76.2043 kg

DRUGS (2)
  1. MAGNEVIST [Suspect]
     Dosage: 20 ONCE
     Dates: start: 20090626
  2. MAGNEVIST [Suspect]

REACTIONS (11)
  - BONE PAIN [None]
  - FAECAL INCONTINENCE [None]
  - HYPERTENSION [None]
  - SWELLING [None]
  - SKIN WRINKLING [None]
  - INFLAMMATION [None]
  - BURNING SENSATION [None]
  - PRURITUS [None]
  - SKIN DISORDER [None]
  - SKIN DISCOLOURATION [None]
  - DRY MOUTH [None]
